FAERS Safety Report 18006398 (Version 1)
Quarter: 2020Q3

REPORT INFORMATION
  Report Type: Spontaneous
  Country: US (occurrence: US)
  Receive Date: 20200710
  Receipt Date: 20200710
  Transmission Date: 20201103
  Serious: No
  Sender: FDA-Public Use
  Company Number: None

PATIENT

DRUGS (2)
  1. ROCURONIUM BROMIDE. [Suspect]
     Active Substance: ROCURONIUM BROMIDE
     Dosage: ADMIN ROUTE: INJECTION?TYPE: VIAL
  2. METOPROLOL TARTRATE. [Suspect]
     Active Substance: METOPROLOL TARTRATE
     Dosage: ADMIN ROUTE: INJECTION?TYPE: VIAL

REACTIONS (4)
  - Product storage error [None]
  - Bradycardia [None]
  - Wrong product administered [None]
  - Hypotension [None]
